FAERS Safety Report 6258689-0 (Version None)
Quarter: 2009Q3

REPORT INFORMATION
  Report Type: 
  Country: None (occurrence: None)
  Receive Date: 20090707
  Receipt Date: 20090702
  Transmission Date: 20100115
  Serious: Yes (Hospitalization)
  Sender: FDA-Public Use
  Company Number: US-AMGEN-US351500

PATIENT
  Sex: Male
  Weight: 100.3 kg

DRUGS (4)
  1. NPLATE [Suspect]
     Indication: IDIOPATHIC THROMBOCYTOPENIC PURPURA
     Route: 058
     Dates: start: 20090518
  2. PREDNISONE [Concomitant]
     Dates: start: 20090514
  3. OXYCONTIN [Concomitant]
     Dates: start: 20090602
  4. VICODIN [Concomitant]
     Dates: start: 20090527

REACTIONS (2)
  - NEUROPATHY PERIPHERAL [None]
  - PAIN IN EXTREMITY [None]
